FAERS Safety Report 10171153 (Version 1)
Quarter: 2014Q2

REPORT INFORMATION
  Report Type: Spontaneous
  Country: US (occurrence: None)
  Receive Date: 20140512
  Receipt Date: 20140512
  Transmission Date: 20141212
  Serious: Yes (Other)
  Sender: FDA-Public Use
  Company Number: US-ALKEM-000583

PATIENT
  Age: 8 Year
  Sex: Male

DRUGS (3)
  1. MYCOPHENOLATE MOFETIL (MYCOPHENOLATE MOFETIL) [Suspect]
     Indication: HEART TRANSPLANT
  2. PREDNISONE (PREDNISONE) [Suspect]
     Indication: HEART TRANSPLANT
  3. TACROLIMUS (TACROLIMUS) [Suspect]
     Indication: HEART TRANSPLANT

REACTIONS (1)
  - Angioimmunoblastic T-cell lymphoma [None]
